FAERS Safety Report 22632650 (Version 1)
Quarter: 2023Q2

REPORT INFORMATION
  Report Type: Report from Study
  Country: CO (occurrence: CO)
  Receive Date: 20230623
  Receipt Date: 20230623
  Transmission Date: 20230722
  Serious: Yes (Hospitalization, Other)
  Sender: FDA-Public Use
  Company Number: CO-ABBVIE-5300044

PATIENT
  Age: 74 Year
  Sex: Male
  Weight: 78 kg

DRUGS (1)
  1. SKYRIZI [Suspect]
     Active Substance: RISANKIZUMAB-RZAA
     Indication: Psoriasis
     Dosage: FORM STRENGTH 75 MILLIGRAM
     Route: 058
     Dates: start: 20220506, end: 202306

REACTIONS (2)
  - Fall [Recovering/Resolving]
  - Femur fracture [Recovering/Resolving]

NARRATIVE: CASE EVENT DATE: 20230603
